FAERS Safety Report 7424458-9 (Version None)
Quarter: 2011Q2

REPORT INFORMATION
  Report Type: 
  Country: None (occurrence: None)
  Receive Date: 20110419
  Receipt Date: 20110411
  Transmission Date: 20111010
  Serious: Yes (Congenital Anomaly)
  Sender: FDA-Public Use
  Company Number: GB-BRACCO-000334

PATIENT
  Sex: Female

DRUGS (2)
  1. NIOPAM [Suspect]
     Indication: HYSTEROSALPINGOGRAM
     Route: 064
     Dates: start: 20101022, end: 20101022
  2. NIOPAM [Suspect]
     Indication: INFERTILITY
     Route: 064
     Dates: start: 20101022, end: 20101022

REACTIONS (1)
  - FOETAL MALFORMATION [None]
